FAERS Safety Report 9332701 (Version 1)
Quarter: 2013Q2

REPORT INFORMATION
  Report Type: Report from Study
  Country: AR (occurrence: AR)
  Receive Date: 20130606
  Receipt Date: 20130606
  Transmission Date: 20140414
  Serious: Yes (Other)
  Sender: FDA-Public Use
  Company Number: PHHY2013AR057317

PATIENT
  Age: 71 Year
  Sex: Male

DRUGS (2)
  1. GALVUS MET [Suspect]
     Indication: DIABETES MELLITUS
     Dosage: 2 DF (1000 MG METF, 50 MG VILD), DAILY
     Route: 048
     Dates: start: 2011
  2. DIOVAN [Suspect]
     Indication: HYPERTENSION
     Dosage: 80 MG, DAILY
     Route: 048
     Dates: start: 2011

REACTIONS (4)
  - Malaise [Unknown]
  - Nervousness [Unknown]
  - Pain in extremity [Unknown]
  - Weight increased [Unknown]
